FAERS Safety Report 14184751 (Version 1)
Quarter: 2017Q4

REPORT INFORMATION
  Report Type: Spontaneous
  Country: TR (occurrence: TR)
  Receive Date: 20171114
  Receipt Date: 20171114
  Transmission Date: 20180321
  Serious: Yes (Hospitalization)
  Sender: FDA-Public Use
  Company Number: TR-GLENMARK PHARMACEUTICALS-2017GMK029685

PATIENT
  Sex: Male
  Weight: .3 kg

DRUGS (1)
  1. CITALOPRAM HYDROBROMIDE. [Suspect]
     Active Substance: CITALOPRAM HYDROBROMIDE
     Indication: PRODUCT USED FOR UNKNOWN INDICATION
     Dosage: 10 MG, QD
     Route: 064

REACTIONS (9)
  - Feeling jittery [Recovering/Resolving]
  - Posture abnormal [Recovering/Resolving]
  - Hyperreflexia [Recovering/Resolving]
  - Agitation neonatal [Recovering/Resolving]
  - Hypertonia neonatal [Recovering/Resolving]
  - Neonatal respiratory distress syndrome [Recovering/Resolving]
  - Foetal exposure during pregnancy [Unknown]
  - Drug withdrawal syndrome neonatal [Recovering/Resolving]
  - Muscle rigidity [Recovering/Resolving]
